FAERS Safety Report 13531199 (Version 4)
Quarter: 2017Q2

REPORT INFORMATION
  Report Type: Other
  Country: US (occurrence: US)
  Receive Date: 20170510
  Receipt Date: 20170627
  Transmission Date: 20170830
  Serious: Yes (Hospitalization, Other)
  Sender: FDA-Public Use
  Company Number: US-PROCTER+GAMBLE-GS17048195

PATIENT
  Age: 77 Year
  Sex: Female

DRUGS (1)
  1. VICKS NYQUIL SEVERE COLD AND FLU [Suspect]
     Active Substance: ACETAMINOPHEN\DEXTROMETHORPHAN HYDROBROMIDE\DOXYLAMINE SUCCINATE\PHENYLEPHRINE
     Indication: UPPER-AIRWAY COUGH SYNDROME
     Dosage: ONE CAPFUL, 1 ONLY
     Route: 048
     Dates: start: 20170424, end: 20170424

REACTIONS (14)
  - Pneumonia bacterial [Unknown]
  - Painful respiration [Recovered/Resolved]
  - Oxygen saturation decreased [Recovered/Resolved]
  - Erythema [Recovered/Resolved]
  - Suspected transmission of an infectious agent via product [Unknown]
  - Rosacea [Recovered/Resolved]
  - Malaise [Recovered/Resolved]
  - Dyspnoea [Recovering/Resolving]
  - Blood pressure increased [Recovered/Resolved]
  - Throat irritation [Recovered/Resolved]
  - Condition aggravated [Recovered/Resolved]
  - Productive cough [Recovered/Resolved]
  - Suspected product tampering [Unknown]
  - Pneumonia [Unknown]

NARRATIVE: CASE EVENT DATE: 20170424
